FAERS Safety Report 18737471 (Version 1)
Quarter: 2021Q1

REPORT INFORMATION
  Report Type: Spontaneous
  Country: PL (occurrence: PL)
  Receive Date: 20210113
  Receipt Date: 20210113
  Transmission Date: 20210419
  Serious: Yes (Other)
  Sender: FDA-Public Use
  Company Number: PL-BAUSCH-BL-2021-000157

PATIENT
  Age: 59 Year
  Sex: Male

DRUGS (9)
  1. DEXAMETHASONE. [Suspect]
     Active Substance: DEXAMETHASONE
     Dosage: 4 CYCLES OF VRD (VELCADE 1 MG/M2/D WEEKLY) 14/NOV/2018 ? 01/MAR/2019
     Route: 065
     Dates: start: 20181114, end: 20190301
  2. VELCADE [Suspect]
     Active Substance: BORTEZOMIB
     Indication: PLASMA CELL MYELOMA
     Dosage: 2 VD/ (19/MAR/2018 ? 09/APR/2018)
     Route: 065
     Dates: start: 20180319, end: 20180409
  3. VELCADE [Suspect]
     Active Substance: BORTEZOMIB
     Dosage: 6 VCD (30/APR/2018 ? 31/AUG/2018)
     Route: 065
     Dates: start: 20180430, end: 20180831
  4. REVLIMID [Suspect]
     Active Substance: LENALIDOMIDE
     Indication: PLASMA CELL MYELOMA
     Dosage: 4 CYCLES OF VRD (VELCADE 1 MG/M2/D WEEKLY) ? 14/NOV/2018 ? 01/MAR/2019
     Route: 065
     Dates: start: 20181114, end: 20190301
  5. DEXAMETHASONE. [Suspect]
     Active Substance: DEXAMETHASONE
     Dosage: 6 VCD (30/APR/2018 ? 31/AUG/2018)
     Route: 065
     Dates: start: 20180430, end: 20180831
  6. DEXAMETHASONE. [Suspect]
     Active Substance: DEXAMETHASONE
     Indication: PLASMA CELL MYELOMA
     Dosage: 2 VD/ (19/MAR/2018 ? 09/APR/2018)
     Route: 065
     Dates: start: 20180319, end: 20180409
  7. DARZALEX [Suspect]
     Active Substance: DARATUMUMAB
     Indication: PLASMA CELL MYELOMA
     Dosage: DVD
     Route: 065
  8. VELCADE [Suspect]
     Active Substance: BORTEZOMIB
     Dosage: 4 CYCLES OF VRD (VELCADE 1 MG/M2/D WEEKLY) ? 14/NOV/2018 ? 01/MAR/2019
     Route: 065
     Dates: start: 20181114, end: 20190301
  9. CYCLOPHOSPHAMIDE. [Suspect]
     Active Substance: CYCLOPHOSPHAMIDE
     Indication: PLASMA CELL MYELOMA
     Dosage: 6 VCD (30/APR/2018 ? 31/AUG/2018) ? ENDOXAN: 50 % OF DOSE DUE TO INTOLERANCE
     Route: 065
     Dates: start: 20180430, end: 20180831

REACTIONS (4)
  - Hypersensitivity [Recovered/Resolved]
  - Drug intolerance [Unknown]
  - Polyneuropathy [Unknown]
  - Plasma cell myeloma [Unknown]
